FAERS Safety Report 10230098 (Version 5)
Quarter: 2014Q4

REPORT INFORMATION
  Report Type: Spontaneous
  Country: US (occurrence: US)
  Receive Date: 20140611
  Receipt Date: 20141215
  Transmission Date: 20150528
  Serious: Yes (Death)
  Sender: FDA-Public Use
  Company Number: US-PFIZER INC-2014155429

PATIENT
  Age: 73 Year
  Sex: Female

DRUGS (3)
  1. XALKORI [Suspect]
     Active Substance: CRIZOTINIB
     Indication: NEOPLASM MALIGNANT
     Dosage: 250 MG, 2X/DAY
     Route: 048
     Dates: start: 20140520
  2. XALKORI [Suspect]
     Active Substance: CRIZOTINIB
     Dosage: 250 MG, 2X/DAY
     Route: 048
     Dates: start: 20140610
  3. XALKORI [Suspect]
     Active Substance: CRIZOTINIB
     Dosage: 250 MG, 2X/DAY
     Route: 048
     Dates: start: 20140610

REACTIONS (11)
  - Visual impairment [Not Recovered/Not Resolved]
  - Rash [Not Recovered/Not Resolved]
  - Liver function test abnormal [Unknown]
  - Neoplasm malignant [Fatal]
  - Vomiting [Unknown]
  - Dizziness [Not Recovered/Not Resolved]
  - Neck mass [Unknown]
  - Nausea [Unknown]
  - Thrombosis [Not Recovered/Not Resolved]
  - Disease progression [Fatal]
  - Headache [Unknown]

NARRATIVE: CASE EVENT DATE: 201405
